FAERS Safety Report 19732964 (Version 2)
Quarter: 2021Q3

REPORT INFORMATION
  Report Type: Spontaneous
  Country: PK (occurrence: PK)
  Receive Date: 20210823
  Receipt Date: 20210920
  Transmission Date: 20211014
  Serious: Yes (Other)
  Sender: FDA-Public Use
  Company Number: PK-AMGEN-PAKSP2019196689

PATIENT
  Age: 19 Year
  Sex: Male
  Weight: 52 kg

DRUGS (4)
  1. ENBREL [Suspect]
     Active Substance: ETANERCEPT
     Indication: JUVENILE IDIOPATHIC ARTHRITIS
     Dosage: 50 MG, FORTNIGHTLY
     Route: 058
     Dates: start: 201706
  2. PROXEN [KETOPROFEN] [Concomitant]
     Active Substance: KETOPROFEN
     Dosage: 500 MG, AS NEEDED
     Dates: start: 2016
  3. ENBREL [Suspect]
     Active Substance: ETANERCEPT
     Indication: ANKYLOSING SPONDYLITIS
     Dosage: 50 MG, WEEKLY
     Route: 058
  4. RISEK [OMEPRAZOLE] [Concomitant]
     Dosage: 20 MG, AS NEEDED
     Dates: start: 2016

REACTIONS (4)
  - Off label use [Unknown]
  - Arthralgia [Not Recovered/Not Resolved]
  - Juvenile idiopathic arthritis [Unknown]
  - Weight increased [Unknown]

NARRATIVE: CASE EVENT DATE: 20191115
